FAERS Safety Report 17227597 (Version 2)
Quarter: 2020Q4

REPORT INFORMATION
  Report Type: Spontaneous
  Country: US (occurrence: US)
  Receive Date: 20200103
  Receipt Date: 20201201
  Transmission Date: 20210113
  Serious: No
  Sender: FDA-Public Use
  Company Number: US-LUNDBECK-DKLU3008808

PATIENT
  Age: 87 Year
  Sex: Male

DRUGS (2)
  1. NORTHERA [Suspect]
     Active Substance: DROXIDOPA
     Indication: NEURODEGENERATIVE DISORDER
     Route: 065
  2. NORTHERA [Suspect]
     Active Substance: DROXIDOPA
     Indication: DEMENTIA WITH LEWY BODIES
     Route: 048

REACTIONS (1)
  - Fall [Unknown]
